FAERS Safety Report 14742095 (Version 2)
Quarter: 2018Q2

REPORT INFORMATION
  Report Type: Report from Study
  Country: GB (occurrence: GB)
  Receive Date: 20180410
  Receipt Date: 20180504
  Transmission Date: 20180711
  Serious: Yes (Death, Hospitalization, Other)
  Sender: FDA-Public Use
  Company Number: GB-AMGEN-GBRSL2018046060

PATIENT
  Age: 67 Year
  Sex: Male

DRUGS (1)
  1. ARANESP [Suspect]
     Active Substance: DARBEPOETIN ALFA
     Indication: PRODUCT USED FOR UNKNOWN INDICATION
     Dosage: 50 MUG, UNK
     Route: 065

REACTIONS (8)
  - Diarrhoea [Unknown]
  - Blood glucose decreased [Not Recovered/Not Resolved]
  - Neuropathy peripheral [Unknown]
  - Hypotension [Not Recovered/Not Resolved]
  - Cellulitis [Not Recovered/Not Resolved]
  - Asthenia [Unknown]
  - Death [Fatal]
  - Weight decreased [Unknown]

NARRATIVE: CASE EVENT DATE: 20180430
